FAERS Safety Report 11201748 (Version 1)
Quarter: 2015Q2

REPORT INFORMATION
  Report Type: Spontaneous
  Country: JP (occurrence: JP)
  Receive Date: 20150619
  Receipt Date: 20150619
  Transmission Date: 20150821
  Serious: Yes (Other)
  Sender: FDA-Public Use
  Company Number: JP-MALLINCKRODT-T201503053

PATIENT
  Age: 66 Year
  Sex: Male

DRUGS (2)
  1. OPTIRAY 350 [Suspect]
     Active Substance: IOVERSOL
     Indication: PERCUTANEOUS CORONARY INTERVENTION
     Dosage: 223 ML, SINGLE
     Route: 013
     Dates: start: 20140911, end: 20140911
  2. HEPARIN [Suspect]
     Active Substance: HEPARIN SODIUM
     Indication: ULTRASOUND DOPPLER
     Dosage: UNK
     Route: 065
     Dates: start: 20140911, end: 20140911

REACTIONS (2)
  - Thrombosis in device [Recovered/Resolved]
  - Anaphylactic shock [Recovered/Resolved]

NARRATIVE: CASE EVENT DATE: 20140911
